FAERS Safety Report 25676220 (Version 1)
Quarter: 2025Q3

REPORT INFORMATION
  Report Type: Spontaneous
  Country: KR (occurrence: KR)
  Receive Date: 20250813
  Receipt Date: 20250813
  Transmission Date: 20251021
  Serious: Yes (Other)
  Sender: EMD SERONO INC
  Company Number: KR-Merck Healthcare KGaA-2025040981

PATIENT
  Age: 86 Year
  Sex: Female

DRUGS (11)
  1. BAVENCIO [Suspect]
     Active Substance: AVELUMAB
     Indication: Transitional cell carcinoma metastatic
     Dates: start: 20241015, end: 20241126
  2. KYTRIL [Concomitant]
     Active Substance: GRANISETRON HYDROCHLORIDE
     Indication: Product used for unknown indication
  3. PHENIL [CHLORPHENAMINE MALEATE] [Concomitant]
     Indication: Product used for unknown indication
  4. MACPERAN [METOCLOPRAMIDE] [Concomitant]
     Indication: Product used for unknown indication
  5. DEXAMETHASONE SODIUM PHOSPHATE [Concomitant]
     Active Substance: DEXAMETHASONE SODIUM PHOSPHATE
     Indication: Product used for unknown indication
  6. FERROUS SULFATE [Concomitant]
     Active Substance: FERROUS SULFATE
     Indication: Product used for unknown indication
  7. NESBELL [Concomitant]
     Indication: Product used for unknown indication
  8. TWOLION [Concomitant]
     Indication: Product used for unknown indication
  9. TOPISOL [CLOBETASOL] [Concomitant]
     Indication: Product used for unknown indication
  10. MUCOBARRIER [Concomitant]
     Indication: Product used for unknown indication
  11. MEGESTROL [Concomitant]
     Active Substance: MEGESTROL
     Indication: Product used for unknown indication

REACTIONS (1)
  - Disease progression [Unknown]
